FAERS Safety Report 24566103 (Version 1)
Quarter: 2024Q4

REPORT INFORMATION
  Report Type: Spontaneous
  Country: PL (occurrence: PL)
  Receive Date: 20241030
  Receipt Date: 20241030
  Transmission Date: 20250115
  Serious: Yes (Other)
  Sender: IMMUNOCORE
  Company Number: PL-IMMUNOCORE, LTD.-2024-IMC-003307

PATIENT

DRUGS (4)
  1. TEBENTAFUSP [Suspect]
     Active Substance: TEBENTAFUSP
     Indication: Uveal melanoma
     Dosage: 20
     Dates: start: 20230314
  2. TEBENTAFUSP [Suspect]
     Active Substance: TEBENTAFUSP
     Dosage: 30
  3. TEBENTAFUSP [Suspect]
     Active Substance: TEBENTAFUSP
     Dosage: 68
  4. TEBENTAFUSP [Suspect]
     Active Substance: TEBENTAFUSP
     Dosage: 68

REACTIONS (9)
  - Malignant neoplasm progression [Unknown]
  - Limb mass [Unknown]
  - Urinary tract disorder [Unknown]
  - Pleural effusion [Unknown]
  - Intracardiac mass [Unknown]
  - Pericardial effusion [Unknown]
  - Pruritus [Unknown]
  - Diarrhoea [Unknown]
  - Rash [Unknown]

NARRATIVE: CASE EVENT DATE: 20240808
